FAERS Safety Report 7211198-4 (Version None)
Quarter: 2011Q1

REPORT INFORMATION
  Report Type: 
  Country: None (occurrence: None)
  Receive Date: 20110105
  Receipt Date: 20101228
  Transmission Date: 20110831
  Serious: Yes (Hospitalization)
  Sender: FDA-Public Use
  Company Number: KR-JNJFOC-20101204241

PATIENT
  Age: 28 Year
  Sex: Male
  Weight: 42 kg

DRUGS (8)
  1. REMICADE [Suspect]
     Indication: CROHN'S DISEASE
     Route: 042
  2. PENTASA [Concomitant]
     Indication: CROHN'S DISEASE
     Route: 048
  3. ALGION [Concomitant]
     Indication: GASTROINTESTINAL PAIN
     Route: 048
  4. METRONIDAZOLE [Concomitant]
     Indication: PROPHYLAXIS
     Route: 048
  5. ANTIBIOTIC [Concomitant]
     Indication: PROPHYLAXIS
     Route: 048
  6. REMICADE [Suspect]
     Dosage: 1ST INFUSION
     Route: 042
  7. MUCOSTA [Concomitant]
     Indication: ANTACID THERAPY
     Route: 048
  8. FOLIC ACID [Concomitant]
     Route: 048

REACTIONS (6)
  - TACHYPNOEA [None]
  - INFUSION RELATED REACTION [None]
  - PORTAL VEIN THROMBOSIS [None]
  - PYREXIA [None]
  - DYSPNOEA [None]
  - ENTEROCUTANEOUS FISTULA [None]
